FAERS Safety Report 11521737 (Version 1)
Quarter: 2015Q3

REPORT INFORMATION
  Report Type: Spontaneous
  Country: US (occurrence: US)
  Receive Date: 20150918
  Receipt Date: 20150918
  Transmission Date: 20151125
  Serious: Yes (Other)
  Sender: FDA-Public Use
  Company Number: US-ROCHE-751509

PATIENT
  Age: 53 Year
  Sex: Female
  Weight: 50.8 kg

DRUGS (4)
  1. PEGASYS [Suspect]
     Active Substance: PEGINTERFERON ALFA-2A
     Indication: HEPATITIS C
     Route: 065
  2. SPIRONOLACTONE. [Concomitant]
     Active Substance: SPIRONOLACTONE
     Route: 065
  3. RIBASPHERE [Concomitant]
     Active Substance: RIBAVIRIN
     Route: 065
  4. NADOLOL. [Concomitant]
     Active Substance: NADOLOL
     Route: 065

REACTIONS (3)
  - Accidental exposure to product [Unknown]
  - Needle issue [Unknown]
  - Anaemia [Unknown]

NARRATIVE: CASE EVENT DATE: 201009
